FAERS Safety Report 4961950-0 (Version None)
Quarter: 2006Q2

REPORT INFORMATION
  Report Type: 
  Country: None (occurrence: None)
  Receive Date: 20060404
  Receipt Date: 20041210
  Transmission Date: 20061013
  Serious: Yes (Hospitalization, Other)
  Sender: FDA-Public Use
  Company Number: US-MERCK-0412USA01370

PATIENT
  Age: 67 Year
  Sex: Male

DRUGS (4)
  1. VIOXX [Suspect]
     Indication: ARTHRITIS
     Route: 048
     Dates: start: 20001001, end: 20010101
  2. VIOXX [Suspect]
     Route: 048
     Dates: start: 20020118
  3. VIOXX [Suspect]
     Route: 048
     Dates: start: 20000101, end: 20020101
  4. VIOXX [Suspect]
     Route: 048
     Dates: start: 20000101, end: 20020101

REACTIONS (12)
  - ARTHROPATHY [None]
  - BRADYCARDIA [None]
  - BRONCHITIS [None]
  - CEREBRAL ATROPHY [None]
  - LIMB DISCOMFORT [None]
  - MYOCARDIAL INFARCTION [None]
  - NAUSEA [None]
  - OEDEMA PERIPHERAL [None]
  - PAIN IN EXTREMITY [None]
  - SYNCOPE [None]
  - TACHYCARDIA [None]
  - VOMITING [None]
